FAERS Safety Report 19525921 (Version 1)
Quarter: 2021Q3

REPORT INFORMATION
  Report Type: Spontaneous
  Country: US (occurrence: US)
  Receive Date: 20210713
  Receipt Date: 20210713
  Transmission Date: 20211014
  Serious: No
  Sender: FDA-Public Use
  Company Number: None

PATIENT
  Sex: Male
  Weight: 92.99 kg

DRUGS (6)
  1. ACYCLOVI R [Concomitant]
  2. NINLARO [Suspect]
     Active Substance: IXAZOMIB CITRATE
     Indication: PLASMA CELL MYELOMA
     Route: 048
  3. ASPIRIN. [Concomitant]
     Active Substance: ASPIRIN
  4. REVLIMID [Concomitant]
     Active Substance: LENALIDOMIDE
  5. DECADRON [Concomitant]
     Active Substance: DEXAMETHASONE
  6. NINLARO [Concomitant]
     Active Substance: IXAZOMIB CITRATE

REACTIONS (1)
  - Disease progression [None]
